FAERS Safety Report 5109037-0 (Version None)
Quarter: 2006Q3

REPORT INFORMATION
  Report Type: 
  Country: None (occurrence: None)
  Receive Date: 20060918
  Receipt Date: 20060905
  Transmission Date: 20061208
  Serious: Yes (Hospitalization, Other)
  Sender: FDA-Public Use
  Company Number: 2005003617

PATIENT
  Age: 28 Year
  Sex: Male

DRUGS (5)
  1. NEURONTIN [Suspect]
     Indication: ANXIETY
     Dosage: 3200 MG (800 MG, 4 IN 1 D); ORAL
     Route: 048
     Dates: start: 20010516
  2. NEURONTIN [Suspect]
     Indication: DEPRESSION
     Dosage: 3200 MG (800 MG, 4 IN 1 D); ORAL
     Route: 048
     Dates: start: 20010516
  3. ATIVAN [Concomitant]
  4. CELEXA [Concomitant]
  5. AMBIEN [Concomitant]

REACTIONS (20)
  - ADJUSTMENT DISORDER [None]
  - ANTISOCIAL BEHAVIOUR [None]
  - ANTISOCIAL PERSONALITY DISORDER [None]
  - ANXIETY [None]
  - BIPOLAR DISORDER [None]
  - BORDERLINE PERSONALITY DISORDER [None]
  - CHEST INJURY [None]
  - CONDITION AGGRAVATED [None]
  - DEPRESSION [None]
  - DISEASE RECURRENCE [None]
  - DRUG EFFECT DECREASED [None]
  - GASTROOESOPHAGEAL REFLUX DISEASE [None]
  - GUN SHOT WOUND [None]
  - HAEMOTHORAX [None]
  - HOMICIDAL IDEATION [None]
  - INTENTIONAL SELF-INJURY [None]
  - LUNG INJURY [None]
  - MAJOR DEPRESSION [None]
  - SUICIDAL IDEATION [None]
  - SUICIDE ATTEMPT [None]
